FAERS Safety Report 7128904-X (Version None)
Quarter: 2010Q4

REPORT INFORMATION
  Report Type: 
  Country: None (occurrence: None)
  Receive Date: 20101130
  Receipt Date: 20101123
  Transmission Date: 20110411
  Serious: Yes (Death)
  Sender: FDA-Public Use
  Company Number: A0889426A

PATIENT
  Age: 12 Year
  Sex: Female

DRUGS (2)
  1. ADVAIR DISKUS 100/50 [Suspect]
     Indication: ASTHMA
     Route: 055
     Dates: start: 20040101, end: 20071125
  2. UNSPECIFIED MEDICATION [Concomitant]
     Dates: end: 20071125

REACTIONS (1)
  - ASTHMA [None]
